FAERS Safety Report 24676699 (Version 3)
Quarter: 2024Q4

REPORT INFORMATION
  Report Type: Report from Study
  Country: KR (occurrence: KR)
  Receive Date: 20241128
  Receipt Date: 20241207
  Transmission Date: 20250115
  Serious: Yes (Hospitalization)
  Sender: ABBVIE
  Company Number: KR-ABBVIE-6022296

PATIENT
  Sex: Female

DRUGS (13)
  1. SKYRIZI [Suspect]
     Active Substance: RISANKIZUMAB-RZAA
     Indication: Psoriasis
     Dosage: FREQUENCY TEXT: ONCE
     Route: 058
     Dates: start: 20230830, end: 20230830
  2. SKYRIZI [Suspect]
     Active Substance: RISANKIZUMAB-RZAA
     Route: 058
  3. Ursa daewoong [Concomitant]
     Indication: Hepatobiliary disorder prophylaxis
     Dosage: TIME INTERVAL: 0.33333333 DAYS
     Route: 048
     Dates: start: 20230918, end: 20230920
  4. ILDONG FLUMARIN [Concomitant]
     Indication: Infection prophylaxis
     Dosage: FLOMOXEF SODIUM 0.5G
     Route: 042
     Dates: start: 20230912, end: 20230926
  5. Feroba you sr [Concomitant]
     Indication: Anaemia prophylaxis
     Dosage: DRIED FERROUS SULFATE 256  (80  AS IRON)
     Route: 048
     Dates: start: 20230913, end: 20230926
  6. ACLOFEN [Concomitant]
     Indication: Pain prophylaxis
     Dosage: 100MG(ACECLOFENAC 100 )
     Route: 048
     Dates: start: 20230914, end: 20231207
  7. VENITOL [Concomitant]
     Indication: Pain prophylaxis
     Dosage: MICRONIZED PURIFIED FLAVONOID FRACTION 500
     Route: 048
     Dates: start: 20230914, end: 20231207
  8. CELEBREX [Concomitant]
     Active Substance: CELECOXIB
     Indication: Pain prophylaxis
     Route: 048
     Dates: start: 20231024, end: 20231122
  9. RAMOSETRON HYDROCHLORIDE [Concomitant]
     Active Substance: RAMOSETRON HYDROCHLORIDE
     Indication: Prophylaxis of nausea and vomiting
     Dosage: 0.3MG (VIAL)
     Route: 042
     Dates: start: 20230913, end: 20230916
  10. CEFACULOR [Concomitant]
     Indication: Infection prophylaxis
     Dosage: TIME INTERVAL: 0.33333333 DAYS: CEFACLOR HYDRATE 250
     Route: 048
     Dates: start: 20231124, end: 20231130
  11. ENTELON [Concomitant]
     Indication: Pain prophylaxis
     Dosage: VITIS VINIFERA SEED DRIED EXTRACT 150
     Route: 048
     Dates: start: 20231024, end: 20231122
  12. ACETAMINOPHEN\TRAMADOL [Concomitant]
     Active Substance: ACETAMINOPHEN\TRAMADOL
     Indication: Pain prophylaxis
     Dosage: ACETAMINOPHEN 325 , TRAMADOL HYDROCHLORIDE 37.5
     Route: 048
     Dates: start: 20230914, end: 20231207
  13. ACETYLCYSTEINE [Concomitant]
     Active Substance: ACETYLCYSTEINE
     Indication: Lung disorder
     Dosage: TIME INTERVAL: 0.33333333 DAYS: ACETYLCYSTEINE 100MG
     Route: 042
     Dates: start: 20230913, end: 20230916

REACTIONS (1)
  - Ankle fracture [Recovered/Resolved]

NARRATIVE: CASE EVENT DATE: 20230910
